FAERS Safety Report 7510155-8 (Version None)
Quarter: 2011Q2

REPORT INFORMATION
  Report Type: 
  Country: None (occurrence: None)
  Receive Date: 20110527
  Receipt Date: 20110217
  Transmission Date: 20111010
  Serious: Yes (Hospitalization, Other)
  Sender: FDA-Public Use
  Company Number: US-BAYER-201039719NA

PATIENT
  Age: 38 Year
  Sex: Female
  Weight: 92.063 kg

DRUGS (5)
  1. PEPCID [Concomitant]
  2. PROVENTIL [Concomitant]
  3. ZITHROMAX [Concomitant]
  4. LEXAPRO [Concomitant]
  5. YAZ [Suspect]
     Indication: PRODUCT USED FOR UNKNOWN INDICATION
     Route: 048
     Dates: start: 20060801, end: 20060901

REACTIONS (5)
  - PALPITATIONS [None]
  - PULMONARY EMBOLISM [None]
  - OEDEMA PERIPHERAL [None]
  - DYSPNOEA [None]
  - DEEP VEIN THROMBOSIS [None]
